FAERS Safety Report 7634715-9 (Version None)
Quarter: 2011Q3

REPORT INFORMATION
  Report Type: 
  Country: None (occurrence: None)
  Receive Date: 20110725
  Receipt Date: 20110721
  Transmission Date: 20111222
  Serious: Yes (Hospitalization)
  Sender: FDA-Public Use
  Company Number: FR-BRISTOL-MYERS SQUIBB COMPANY-15816937

PATIENT
  Age: 41 Year
  Sex: Male

DRUGS (4)
  1. CELLCEPT [Suspect]
     Dates: start: 20070507
  2. ATORVASTATIN CALCIUM [Concomitant]
     Dates: start: 20080922
  3. PREDNISONE [Suspect]
     Dates: start: 20070511
  4. BELATACEPT [Suspect]
     Indication: RENAL TRANSPLANT
     Route: 042
     Dates: start: 20070507

REACTIONS (1)
  - GASTROENTERITIS NOROVIRUS [None]
